FAERS Safety Report 8465201-4 (Version None)
Quarter: 2012Q2

REPORT INFORMATION
  Report Type: 
  Country: None (occurrence: None)
  Receive Date: 20120626
  Receipt Date: 20120619
  Transmission Date: 20120825
  Serious: Yes (Other)
  Sender: FDA-Public Use
  Company Number: PHHY2011CA113869

PATIENT
  Sex: Female

DRUGS (2)
  1. SANDOSTATIN LAR [Suspect]
     Dosage: 40 MG, QMO
     Route: 030
  2. SANDOSTATIN LAR [Suspect]
     Indication: ACROMEGALY
     Dosage: 40 MG, ONCE A MONTH
     Route: 030
     Dates: start: 20111129

REACTIONS (15)
  - BLOOD PRESSURE INCREASED [None]
  - GASTROOESOPHAGEAL REFLUX DISEASE [None]
  - PITUITARY TUMOUR [None]
  - BACK PAIN [None]
  - PAIN IN EXTREMITY [None]
  - ARTHRALGIA [None]
  - DYSPNOEA [None]
  - DYSURIA [None]
  - INSULIN-LIKE GROWTH FACTOR INCREASED [None]
  - HEADACHE [None]
  - VISUAL ACUITY REDUCED [None]
  - INJECTION SITE PAIN [None]
  - SKIN FRAGILITY [None]
  - CONSTIPATION [None]
  - ABDOMINAL PAIN UPPER [None]
